FAERS Safety Report 8537588-5 (Version None)
Quarter: 2012Q3

REPORT INFORMATION
  Report Type: 
  Country: None (occurrence: None)
  Receive Date: 20120712
  Receipt Date: 20120629
  Transmission Date: 20120928
  Serious: Yes (Death)
  Sender: FDA-Public Use
  Company Number: JP-2012-15100

PATIENT
  Age: 83 Year
  Sex: Male
  Weight: 52 kg

DRUGS (9)
  1. GLUCOBAY [Concomitant]
  2. AMIODARONE HYDROCHLORIDE (AMIODARONE HYDROCHLORIDE) TABLET [Concomitant]
  3. LASIX [Concomitant]
  4. SAMSCA [Suspect]
     Indication: OEDEMA
     Dosage: 15 MG MILLIGRAM(S), QD, ORAL
     Route: 048
     Dates: start: 20120418, end: 20120420
  5. ENALAPRIL MALEATE [Concomitant]
  6. ASPIRIN [Concomitant]
  7. THYRADIN (DRIED THYROID) [Concomitant]
  8. FLIVAS (NAFTOPIDIL) TABLET [Concomitant]
  9. ALLOPURINOL [Concomitant]

REACTIONS (3)
  - HAEMODIALYSIS [None]
  - CARDIAC FAILURE [None]
  - RENAL FAILURE ACUTE [None]
